FAERS Safety Report 7169730-5 (Version None)
Quarter: 2010Q4

REPORT INFORMATION
  Report Type: 
  Country: None (occurrence: None)
  Receive Date: 20101217
  Receipt Date: 20101208
  Transmission Date: 20110411
  Serious: Yes (Hospitalization)
  Sender: FDA-Public Use
  Company Number: US-PERRIGO-10US015418

PATIENT
  Age: 35 Year
  Sex: Female

DRUGS (2)
  1. ACETAMINOPHEN SLOW RELEASE [Suspect]
     Indication: OVERDOSE
     Dosage: 5 G, SINGLE
     Route: 048
  2. BACLOFEN [Suspect]
     Indication: OVERDOSE
     Dosage: 1200 MG, SINGLE
     Route: 065

REACTIONS (8)
  - ALANINE AMINOTRANSFERASE INCREASED [None]
  - ASPARTATE AMINOTRANSFERASE INCREASED [None]
  - BLOOD MAGNESIUM DECREASED [None]
  - BRADYCARDIA [None]
  - COMA [None]
  - ENCEPHALOPATHY [None]
  - HYPOTHERMIA [None]
  - MULTIPLE DRUG OVERDOSE [None]
